FAERS Safety Report 23776940 (Version 3)
Quarter: 2024Q3

REPORT INFORMATION
  Report Type: Spontaneous
  Country: CA (occurrence: CA)
  Receive Date: 20240424
  Receipt Date: 20240822
  Transmission Date: 20241016
  Serious: Yes (Other)
  Sender: AMGEN
  Company Number: CA-PFIZER INC-202400090894

PATIENT
  Age: 63 Year
  Sex: Male

DRUGS (2)
  1. ENBREL [Suspect]
     Active Substance: BENZYL ALCOHOL\ETANERCEPT
     Indication: Psoriatic arthropathy
     Dosage: 1 DOSAGE FORM
     Route: 065
  2. METHOTREXATE SODIUM [Suspect]
     Active Substance: METHOTREXATE SODIUM
     Indication: Psoriatic arthropathy
     Dosage: 1 DOSAGE FORM
     Route: 065

REACTIONS (3)
  - Immunoglobulin G4 related disease [Not Recovered/Not Resolved]
  - Type 2 diabetes mellitus [Not Recovered/Not Resolved]
  - Insomnia [Not Recovered/Not Resolved]
